FAERS Safety Report 21184827 (Version 1)
Quarter: 2022Q3

REPORT INFORMATION
  Report Type: Spontaneous
  Country: US (occurrence: None)
  Receive Date: 20220807
  Receipt Date: 20220807
  Transmission Date: 20221027
  Serious: Yes (Hospitalization, Other)
  Sender: FDA-Public Use
  Company Number: None

PATIENT
  Sex: Female
  Weight: 79.38 kg

DRUGS (1)
  1. JAKAFI [Suspect]
     Active Substance: RUXOLITINIB
     Indication: Platelet count increased
     Dosage: FREQUENCY : TWICE A DAY;?
     Route: 048
     Dates: start: 20211212, end: 20220430

REACTIONS (12)
  - Gastric haemorrhage [None]
  - Hepatomegaly [None]
  - Splenomegaly [None]
  - Pain [None]
  - Chest discomfort [None]
  - Contusion [None]
  - Diarrhoea [None]
  - Dysphonia [None]
  - Dyspnoea [None]
  - Dysphagia [None]
  - Sinus pain [None]
  - Abdominal pain upper [None]
